FAERS Safety Report 9270522 (Version 1)
Quarter: 2013Q2

REPORT INFORMATION
  Report Type: Spontaneous
  Country: DK (occurrence: DK)
  Receive Date: 20130503
  Receipt Date: 20130503
  Transmission Date: 20140414
  Serious: Yes (Life-Threatening, Hospitalization)
  Sender: FDA-Public Use
  Company Number: DK-B.I. PHARMACEUTICALS,INC./RIDGEFIELD-2011-SW-00536DB

PATIENT
  Age: 67 Year
  Sex: Female
  Weight: 72 kg

DRUGS (11)
  1. PRADAXA [Suspect]
     Indication: ATRIAL FIBRILLATION
     Dosage: 300 MG
     Route: 048
     Dates: start: 20111110, end: 20111120
  2. AMIODARONE [Suspect]
     Indication: ATRIAL FIBRILLATION
  3. CONTALGIN [Concomitant]
     Indication: PAIN
     Route: 048
     Dates: start: 20110201
  4. CORDAN [Concomitant]
     Indication: ATRIAL FIBRILLATION
     Route: 048
     Dates: start: 20110201
  5. FERRO DURETTER [Concomitant]
     Dosage: 100 MG
     Route: 048
     Dates: start: 20110201
  6. NITROGLYCERIN [Concomitant]
     Route: 060
     Dates: start: 20110201
  7. RAMIPRIL ^HEXAL^ [Concomitant]
     Indication: HYPERTENSION
     Route: 048
     Dates: start: 20110201
  8. FOLIMET [Concomitant]
     Route: 048
  9. HJERTEMAGNYL [Concomitant]
     Indication: THROMBOSIS PROPHYLAXIS
     Route: 048
  10. FURIX [Concomitant]
     Dosage: 80 MG
     Route: 048
  11. KALEORID [Concomitant]
     Indication: MINERAL SUPPLEMENTATION
     Dosage: 1500 MG
     Route: 048

REACTIONS (4)
  - Haematochezia [Recovered/Resolved]
  - Anaemia [Unknown]
  - Diarrhoea [Recovered/Resolved]
  - Drug interaction [Recovered/Resolved]
